FAERS Safety Report 19285299 (Version 1)
Quarter: 2021Q2

REPORT INFORMATION
  Report Type: Spontaneous
  Country: US (occurrence: US)
  Receive Date: 20210521
  Receipt Date: 20210521
  Transmission Date: 20210717
  Serious: No
  Sender: FDA-Public Use
  Company Number: US-BEH-2021131809

PATIENT
  Age: 5 Year
  Sex: Female

DRUGS (2)
  1. JAKAFI [Suspect]
     Active Substance: RUXOLITINIB
     Indication: HYPOGAMMAGLOBULINAEMIA
     Dosage: 2.5 MILLIGRAM, BID
     Route: 048
     Dates: start: 202102
  2. HIZENTRA [Suspect]
     Active Substance: HUMAN IMMUNOGLOBULIN G
     Dosage: UNK
     Route: 065

REACTIONS (2)
  - Injection site swelling [Unknown]
  - Injection site discomfort [Unknown]

NARRATIVE: CASE EVENT DATE: 202102
